FAERS Safety Report 8429865-3 (Version None)
Quarter: 2012Q2

REPORT INFORMATION
  Report Type: 
  Country: None (occurrence: None)
  Receive Date: 20120612
  Receipt Date: 20120529
  Transmission Date: 20120825
  Serious: Yes (Other)
  Sender: FDA-Public Use
  Company Number: JP-FRI-1000030085

PATIENT
  Sex: Female

DRUGS (14)
  1. CONFATANIN [Concomitant]
     Indication: BACK PAIN
     Dosage: 60 MG
     Route: 048
  2. AMOXAPINE [Concomitant]
     Indication: DEPRESSION
     Dosage: 75 MG
     Route: 048
     Dates: start: 20120409, end: 20120412
  3. ZESTROMIN [Concomitant]
     Indication: INSOMNIA
     Dosage: 0.25 MG
     Route: 048
  4. LEXAPRO [Suspect]
     Indication: DEPRESSION
     Dosage: 10 MG
     Route: 048
     Dates: start: 20120412, end: 20120413
  5. ESTAZOLAM [Concomitant]
     Indication: INSOMNIA
     Dosage: 2 MG
     Route: 048
  6. AMOXAPINE [Concomitant]
     Dosage: 75 MG
     Route: 048
     Dates: start: 20120419
  7. BIPERIDEN HYDROCHLORIDE TAB [Suspect]
     Indication: PARKINSON'S DISEASE
     Dosage: 3 MG
     Route: 048
     Dates: start: 20120412, end: 20120413
  8. PAXIL [Concomitant]
     Indication: DEPRESSION
     Dosage: 20 MG
     Route: 048
     Dates: start: 20100428, end: 20120413
  9. YORYACOOL [Concomitant]
     Indication: CONSTIPATION PROPHYLAXIS
     Dosage: 160 MG
     Route: 048
  10. CALSLOT [Concomitant]
     Indication: HYPERTENSION
     Dosage: 10 MG
     Route: 048
     Dates: start: 20120404
  11. MAGMITT [Concomitant]
     Indication: CONSTIPATION PROPHYLAXIS
     Dosage: 1980 MG
     Route: 048
  12. DEPAS [Concomitant]
     Route: 048
  13. LEXOTAN [Concomitant]
     Indication: ANXIETY
     Route: 048
  14. ETICALM [Concomitant]
     Indication: ANXIETY
     Dosage: 3 MG
     Route: 048

REACTIONS (1)
  - ANAPHYLACTIC SHOCK [None]
